FAERS Safety Report 9200926 (Version 1)
Quarter: 2013Q2

REPORT INFORMATION
  Report Type: Spontaneous
  Country: US (occurrence: US)
  Receive Date: 20130401
  Receipt Date: 20130401
  Transmission Date: 20140414
  Serious: No
  Sender: FDA-Public Use
  Company Number: US-009507513-1303USA014176

PATIENT
  Age: 26 Year
  Sex: Female
  Weight: 53.61 kg

DRUGS (2)
  1. NUVARING [Suspect]
     Indication: CONTRACEPTION
     Dosage: 3 WEEKS IN 1 WEEK OUT, QM
     Route: 067
  2. VALIUM [Concomitant]
     Dosage: UNK

REACTIONS (2)
  - Adnexa uteri pain [Not Recovered/Not Resolved]
  - Ovarian enlargement [Not Recovered/Not Resolved]
